FAERS Safety Report 25274124 (Version 1)
Quarter: 2025Q2

REPORT INFORMATION
  Report Type: Spontaneous
  Country: IN (occurrence: IN)
  Receive Date: 20250506
  Receipt Date: 20250506
  Transmission Date: 20250716
  Serious: Yes (Other)
  Sender: ACCORD
  Company Number: IN-MLMSERVICE-20250418-PI484414-00232-1

PATIENT
  Age: 55 Year
  Sex: Female

DRUGS (3)
  1. MYCOPHENOLATE MOFETIL [Suspect]
     Active Substance: MYCOPHENOLATE MOFETIL
     Indication: Immunosuppressant drug therapy
     Dates: start: 2002
  2. TACROLIMUS [Suspect]
     Active Substance: TACROLIMUS
     Indication: Immunosuppressant drug therapy
     Dates: start: 2002
  3. PREDNISOLONE [Suspect]
     Active Substance: PREDNISOLONE
     Indication: Immunosuppressant drug therapy
     Dates: start: 2002

REACTIONS (2)
  - Abdominal wall abscess [Recovered/Resolved]
  - Mycobacterium fortuitum infection [Recovered/Resolved]

NARRATIVE: CASE EVENT DATE: 20120101
